FAERS Safety Report 5727220-8 (Version None)
Quarter: 2008Q2

REPORT INFORMATION
  Report Type: 
  Country: None (occurrence: None)
  Receive Date: 20080501
  Receipt Date: 20070713
  Transmission Date: 20081010
  Serious: Yes (Other)
  Sender: FDA-Public Use
  Company Number: PHEH2007US03197

PATIENT
  Age: 75 Year
  Sex: Male

DRUGS (1)
  1. LOTREL [Suspect]
     Indication: HYPERTENSION
     Dosage: 5/20 MG, ORAL
     Route: 048
     Dates: start: 20011221, end: 20040510

REACTIONS (4)
  - ANGIOEDEMA [None]
  - OBSTRUCTIVE AIRWAYS DISORDER [None]
  - OEDEMA MOUTH [None]
  - PHARYNGEAL OEDEMA [None]
